FAERS Safety Report 12282273 (Version 2)
Quarter: 2016Q2

REPORT INFORMATION
  Report Type: Report from Study
  Country: DE (occurrence: DE)
  Receive Date: 20160419
  Receipt Date: 20160502
  Transmission Date: 20160815
  Serious: Yes (Hospitalization)
  Sender: FDA-Public Use
  Company Number: DE-BAYER-2016-070325

PATIENT
  Age: 57 Year
  Sex: Male

DRUGS (3)
  1. ADEMPAS [Suspect]
     Active Substance: RIOCIGUAT
     Indication: PULMONARY ARTERIAL HYPERTENSION
     Dosage: 1.0 MG, TID
     Route: 048
     Dates: start: 20160305
  2. ADEMPAS [Suspect]
     Active Substance: RIOCIGUAT
     Indication: PULMONARY ARTERIAL HYPERTENSION
     Dosage: 1.5 MG, TID
     Route: 048
  3. BOSENTAN. [Concomitant]
     Active Substance: BOSENTAN
     Dosage: UNK
     Dates: start: 2003

REACTIONS (4)
  - Hypotension [None]
  - Dehydration [None]
  - Oedema [None]
  - Acute kidney injury [None]

NARRATIVE: CASE EVENT DATE: 201603
